FAERS Safety Report 4712158-5 (Version None)
Quarter: 2005Q3

REPORT INFORMATION
  Report Type: 
  Country: None (occurrence: None)
  Receive Date: 20050712
  Receipt Date: 20050707
  Transmission Date: 20060218
  Serious: Yes (Other)
  Sender: FDA-Public Use
  Company Number: PHRM2005FR02080

PATIENT
  Age: 69 Year
  Sex: Male

DRUGS (1)
  1. PARLODEL [Suspect]
     Indication: GYNAECOMASTIA
     Dosage: 3.75 MG/DAY
     Route: 048

REACTIONS (2)
  - PROSTATE CANCER [None]
  - PROSTATIC SPECIFIC ANTIGEN INCREASED [None]
